FAERS Safety Report 6253693-0 (Version None)
Quarter: 2009Q2

REPORT INFORMATION
  Report Type: 
  Country: None (occurrence: None)
  Receive Date: 20090630
  Receipt Date: 20090616
  Transmission Date: 20091009
  Serious: No
  Sender: FDA-Public Use
  Company Number: 231238K08USA

PATIENT
  Age: 46 Year
  Sex: Female
  Weight: 111 kg

DRUGS (6)
  1. REBIF [Suspect]
     Indication: MULTIPLE SCLEROSIS
     Dosage: 44 MCG, 3 IN 1 WEEKS, SUBCUTANEOUS
     Route: 058
     Dates: start: 20070725
  2. FLU VACCINE (INFLUENZA VIRUS VACCINE POLYVALENT) [Concomitant]
  3. COENZYME Q10 [Concomitant]
  4. OXYCODONE HCL [Concomitant]
  5. LEXAPRO [Concomitant]
  6. GABAPENTIN [Concomitant]

REACTIONS (7)
  - BLOOD CHOLESTEROL INCREASED [None]
  - CARDIOMEGALY [None]
  - CHEST PAIN [None]
  - DYSPNOEA [None]
  - FLUID RETENTION [None]
  - PNEUMOTHORAX [None]
  - SLEEP APNOEA SYNDROME [None]
